FAERS Safety Report 24278179 (Version 2)
Quarter: 2024Q3

REPORT INFORMATION
  Report Type: Report from Study
  Country: US (occurrence: None)
  Receive Date: 20240903
  Receipt Date: 20240909
  Transmission Date: 20241016
  Serious: Yes (Other)
  Sender: ASTRAZENECA
  Company Number: 2024A194644

PATIENT
  Age: 84 Year
  Sex: Female
  Weight: 84.4 kg

DRUGS (13)
  1. TEZSPIRE [Suspect]
     Active Substance: TEZEPELUMAB-EKKO
     Indication: Asthma
     Dosage: 210 MG / 1.91 ML
     Route: 058
     Dates: start: 20240725
  2. INFLUENZA VIRUS VACCINE [Suspect]
     Active Substance: INFLUENZA VIRUS VACCINE
     Route: 045
  3. MONTELUKAST [Concomitant]
     Active Substance: MONTELUKAST SODIUM
     Dosage: 10 MG AT BED TIME
  4. ALBUTEROL [Concomitant]
     Active Substance: ALBUTEROL
     Dosage: 90MCG AS NEEDED
  5. ADVAIR HFA [Concomitant]
     Active Substance: FLUTICASONE PROPIONATE\SALMETEROL XINAFOATE
  6. GABAPENTIN [Concomitant]
     Active Substance: GABAPENTIN
  7. HYDRALAZINE [Concomitant]
     Active Substance: HYDRALAZINE HYDROCHLORIDE
  8. JARDIANCE [Concomitant]
     Active Substance: EMPAGLIFLOZIN
  9. SPIRONOLACTONE [Concomitant]
     Active Substance: SPIRONOLACTONE
  10. LOSARTAN [Concomitant]
     Active Substance: LOSARTAN\LOSARTAN POTASSIUM
  11. SPIRIVA [Concomitant]
     Active Substance: TIOTROPIUM BROMIDE MONOHYDRATE
  12. VITAMIN C [Concomitant]
     Active Substance: ASCORBIC ACID
  13. VITAMIN E [Concomitant]
     Active Substance: .ALPHA.-TOCOPHEROL

REACTIONS (16)
  - Secretion discharge [Unknown]
  - Drug ineffective [Unknown]
  - Ear pain [Unknown]
  - Breath sounds abnormal [Unknown]
  - Adverse food reaction [Unknown]
  - Herpes zoster [Unknown]
  - Asthma [Unknown]
  - Bronchospasm [Unknown]
  - Nasal turbinate hypertrophy [Unknown]
  - Gastrooesophageal reflux disease [Unknown]
  - Conjunctivitis [Unknown]
  - Rhinitis allergic [Unknown]
  - Oropharyngeal cobble stone mucosa [Unknown]
  - Pharyngeal erythema [Unknown]
  - Product use issue [Unknown]
  - Pharyngeal exudate [Unknown]
